FAERS Safety Report 5088669-2 (Version None)
Quarter: 2006Q3

REPORT INFORMATION
  Report Type: 
  Country: None (occurrence: None)
  Receive Date: 20060825
  Receipt Date: 20060816
  Transmission Date: 20061208
  Serious: Yes (Other)
  Sender: FDA-Public Use
  Company Number: FI-BRISTOL-MYERS SQUIBB COMPANY-13476346

PATIENT
  Age: 46 Year
  Sex: Male

DRUGS (2)
  1. ABILIFY [Suspect]
     Indication: SCHIZOPHRENIA
     Dates: end: 20060814
  2. CLOZAPINE [Concomitant]
     Indication: SCHIZOPHRENIA

REACTIONS (5)
  - LABORATORY TEST ABNORMAL [None]
  - NEOPLASM MALIGNANT [None]
  - PYREXIA [None]
  - WEIGHT DECREASED [None]
  - WHITE BLOOD CELL COUNT INCREASED [None]
